FAERS Safety Report 8395002-7 (Version None)
Quarter: 2012Q2

REPORT INFORMATION
  Report Type: 
  Country: None (occurrence: None)
  Receive Date: 20120530
  Receipt Date: 20120524
  Transmission Date: 20120825
  Serious: Yes (Hospitalization)
  Sender: FDA-Public Use
  Company Number: US-ELI_LILLY_AND_COMPANY-US201205008953

PATIENT
  Sex: Female

DRUGS (4)
  1. EFFIENT [Suspect]
     Indication: STENT PLACEMENT
     Dosage: 5 MG, QD
     Dates: start: 20120225
  2. ANTIHYPERTENSIVES [Concomitant]
  3. VALIUM [Concomitant]
     Dosage: 2 MG, UNK
  4. ASPIRIN [Concomitant]

REACTIONS (5)
  - ASTHENIA [None]
  - GAIT DISTURBANCE [None]
  - PALPITATIONS [None]
  - FLUID RETENTION [None]
  - VISUAL ACUITY REDUCED [None]
